FAERS Safety Report 12194189 (Version 3)
Quarter: 2016Q2

REPORT INFORMATION
  Report Type: Spontaneous
  Country: US (occurrence: US)
  Receive Date: 20160321
  Receipt Date: 20160511
  Transmission Date: 20160815
  Serious: No
  Sender: FDA-Public Use
  Company Number: US-009507513-1603USA008665

PATIENT
  Sex: Female
  Weight: 127.89 kg

DRUGS (1)
  1. NEXPLANON [Suspect]
     Active Substance: ETONOGESTREL
     Indication: CONTRACEPTION
     Dosage: TOTAL DAILY DOSE: REPORTED AS 1
     Route: 058
     Dates: start: 20150324

REACTIONS (2)
  - No adverse event [Unknown]
  - Device kink [Not Recovered/Not Resolved]
